FAERS Safety Report 9456066 (Version 1)
Quarter: 2013Q3

REPORT INFORMATION
  Report Type: Spontaneous
  Country: US (occurrence: US)
  Receive Date: 20130813
  Receipt Date: 20130813
  Transmission Date: 20140515
  Serious: Yes (Death, Hospitalization)
  Sender: FDA-Public Use
  Company Number: US-ACTELION-A-NJ2013-86777

PATIENT
  Age: 76 Year
  Sex: Female

DRUGS (5)
  1. TRACLEER [Suspect]
     Indication: PULMONARY ARTERIAL HYPERTENSION
     Dosage: UNK
     Route: 048
     Dates: start: 20090206, end: 20130725
  2. ADCIRCA [Concomitant]
  3. COREG [Concomitant]
  4. GLUCOTROL [Concomitant]
  5. PREDNISONE [Concomitant]

REACTIONS (3)
  - Death [Fatal]
  - Blood glucose increased [Unknown]
  - Cardiac failure [Unknown]
